FAERS Safety Report 15334891 (Version 1)
Quarter: 2018Q3

REPORT INFORMATION
  Report Type: Report from Study
  Country: None (occurrence: US)
  Receive Date: 20180830
  Receipt Date: 20180830
  Transmission Date: 20181010
  Serious: Yes (Hospitalization)
  Sender: FDA-Public Use
  Company Number: US-ABBVIE-18K-163-2377470-00

PATIENT
  Age: 42 Year
  Sex: Female

DRUGS (2)
  1. HUMIRA [Suspect]
     Active Substance: ADALIMUMAB
     Indication: RHEUMATOID ARTHRITIS
     Route: 058
     Dates: start: 20180530, end: 2018
  2. HUMIRA [Suspect]
     Active Substance: ADALIMUMAB
     Route: 058
     Dates: start: 2018

REACTIONS (18)
  - Gait disturbance [Not Recovered/Not Resolved]
  - Fluid retention [Unknown]
  - Hypersensitivity [Unknown]
  - Sinusitis [Unknown]
  - Fall [Unknown]
  - Joint stiffness [Recovering/Resolving]
  - Abdominal distension [Unknown]
  - Paranasal sinus discomfort [Unknown]
  - Peripheral swelling [Not Recovered/Not Resolved]
  - Joint swelling [Recovering/Resolving]
  - Drug ineffective [Unknown]
  - Loss of consciousness [Unknown]
  - Joint injury [Unknown]
  - Chest pain [Unknown]
  - Eye irritation [Unknown]
  - Injection site pain [Unknown]
  - Arthralgia [Recovering/Resolving]
  - Hyperhidrosis [Unknown]

NARRATIVE: CASE EVENT DATE: 2018
